FAERS Safety Report 8596161 (Version 4)
Quarter: 2012Q4

REPORT INFORMATION
  Report Type: 
  Country: FR (occurrence: FR)
  Receive Date: 20120605
  Receipt Date: 20121108
  Transmission Date: 20130627
  Serious: Yes (Hospitalization, Disabling, Other)
  Sender: FDA-Public Use
  Company Number: FR-JNJFOC-20120520421

PATIENT
  Age: 43 Year
  Sex: Female
  Weight: 70 kg

DRUGS (28)
  1. REMICADE [Suspect]
     Indication: CROHN^S DISEASE
     Route: 042
     Dates: start: 20080221
  2. REMICADE [Suspect]
     Indication: CROHN^S DISEASE
     Dosage: 10th infusion
     Route: 042
     Dates: start: 20081205, end: 20081205
  3. REMICADE [Suspect]
     Indication: CROHN^S DISEASE
     Route: 042
     Dates: start: 20081028
  4. REMICADE [Suspect]
     Indication: CROHN^S DISEASE
     Route: 042
     Dates: start: 20080919
  5. REMICADE [Suspect]
     Indication: CROHN^S DISEASE
     Route: 042
     Dates: start: 20080807
  6. REMICADE [Suspect]
     Indication: CROHN^S DISEASE
     Route: 042
     Dates: start: 20080626
  7. REMICADE [Suspect]
     Indication: CROHN^S DISEASE
     Route: 042
     Dates: start: 20080515
  8. REMICADE [Suspect]
     Indication: CROHN^S DISEASE
     Route: 042
     Dates: start: 20080404
  9. REMICADE [Suspect]
     Indication: CROHN^S DISEASE
     Route: 042
     Dates: end: 20090116
  10. REMICADE [Suspect]
     Indication: CROHN^S DISEASE
     Route: 042
     Dates: start: 20080124
  11. REMICADE [Suspect]
     Indication: CROHN^S DISEASE
     Route: 042
     Dates: start: 20080110
  12. REMICADE [Suspect]
     Indication: ANKYLOSING SPONDYLITIS
     Route: 042
     Dates: start: 20081028
  13. REMICADE [Suspect]
     Indication: ANKYLOSING SPONDYLITIS
     Route: 042
     Dates: start: 20080110
  14. REMICADE [Suspect]
     Indication: ANKYLOSING SPONDYLITIS
     Route: 042
     Dates: start: 20080124
  15. REMICADE [Suspect]
     Indication: ANKYLOSING SPONDYLITIS
     Route: 042
     Dates: start: 20080221
  16. REMICADE [Suspect]
     Indication: ANKYLOSING SPONDYLITIS
     Route: 042
     Dates: end: 20090116
  17. REMICADE [Suspect]
     Indication: ANKYLOSING SPONDYLITIS
     Dosage: 10th infusion
     Route: 042
     Dates: start: 20081205, end: 20081205
  18. REMICADE [Suspect]
     Indication: ANKYLOSING SPONDYLITIS
     Route: 042
     Dates: start: 20080919
  19. REMICADE [Suspect]
     Indication: ANKYLOSING SPONDYLITIS
     Route: 042
     Dates: start: 20080807
  20. REMICADE [Suspect]
     Indication: ANKYLOSING SPONDYLITIS
     Route: 042
     Dates: start: 20080626
  21. REMICADE [Suspect]
     Indication: ANKYLOSING SPONDYLITIS
     Route: 042
     Dates: start: 20080515
  22. REMICADE [Suspect]
     Indication: ANKYLOSING SPONDYLITIS
     Route: 042
     Dates: start: 20080404
  23. CORTISONE [Concomitant]
     Indication: PSORIASIS
     Route: 065
     Dates: start: 2007
  24. CORTISONE [Concomitant]
     Indication: ANKYLOSING SPONDYLITIS
     Route: 065
     Dates: start: 2007
  25. SALAZOPYRINE [Concomitant]
     Dosage: dose: 6 qd
     Route: 065
  26. METHOTREXATE [Concomitant]
     Indication: PSORIASIS
     Route: 065
     Dates: start: 2006
  27. METHOTREXATE [Concomitant]
     Indication: ANKYLOSING SPONDYLITIS
     Route: 065
     Dates: start: 2006
  28. LAMALINE [Concomitant]
     Dosage: 4-6 as necessary
     Route: 065

REACTIONS (16)
  - Night sweats [Unknown]
  - Micturition urgency [Unknown]
  - Hypokinesia [Recovering/Resolving]
  - Myelitis [Recovering/Resolving]
  - Extrapyramidal disorder [Unknown]
  - Depression [Unknown]
  - Psoriasis [Unknown]
  - Middle insomnia [Unknown]
  - Asthenia [Unknown]
  - Pruritus [Unknown]
  - Hot flush [Unknown]
  - Adrenal disorder [Unknown]
  - Weight decreased [Unknown]
  - Headache [Unknown]
  - Drug ineffective [Unknown]
  - Fatigue [Unknown]
